FAERS Safety Report 6674689-0 (Version None)
Quarter: 2010Q2

REPORT INFORMATION
  Report Type: 
  Country: None (occurrence: None)
  Receive Date: 20100409
  Receipt Date: 20100325
  Transmission Date: 20101027
  Serious: Yes (Hospitalization)
  Sender: FDA-Public Use
  Company Number: US-ELI_LILLY_AND_COMPANY-US201001003674

PATIENT
  Sex: Female

DRUGS (5)
  1. FORTEO [Suspect]
     Indication: OSTEOPOROSIS
     Dosage: 20 UG, DAILY (1/D)
     Dates: start: 20090201
  2. FORTEO [Suspect]
     Dosage: 20 UG, DAILY (1/D)
  3. ZOLOFT [Concomitant]
  4. PRILOSEC [Concomitant]
  5. LISINOPRIL [Concomitant]

REACTIONS (4)
  - ARTHROPATHY [None]
  - FALL [None]
  - GAIT DISTURBANCE [None]
  - WRIST FRACTURE [None]
